FAERS Safety Report 8537919-6 (Version None)
Quarter: 2012Q3

REPORT INFORMATION
  Report Type: 
  Country: None (occurrence: None)
  Receive Date: 20120725
  Receipt Date: 20120719
  Transmission Date: 20120928
  Serious: Yes (Death)
  Sender: FDA-Public Use
  Company Number: JP-GLAXOSMITHKLINE-B0808417A

PATIENT
  Sex: Female
  Weight: 61 kg

DRUGS (6)
  1. TYKERB [Suspect]
     Indication: BREAST CANCER
     Dosage: 1250MG PER DAY
     Route: 048
     Dates: start: 20110915, end: 20111215
  2. ZOMETA [Suspect]
     Indication: METASTASES TO BONE
     Route: 042
     Dates: start: 20101004
  3. AMARYL [Suspect]
     Indication: DIABETES MELLITUS
     Route: 048
     Dates: start: 20100901
  4. XELODA [Suspect]
     Dosage: 1800MG PER DAY
     Route: 048
     Dates: start: 20110915, end: 20111215
  5. ADALAT [Suspect]
     Indication: HYPERTENSION
     Route: 048
     Dates: start: 20100901
  6. ALLEGRA [Suspect]
     Route: 048
     Dates: start: 20101113

REACTIONS (1)
  - DEATH [None]
